FAERS Safety Report 20170205 (Version 3)
Quarter: 2023Q2

REPORT INFORMATION
  Report Type: Spontaneous
  Country: US (occurrence: US)
  Receive Date: 20211210
  Receipt Date: 20230518
  Transmission Date: 20230722
  Serious: Yes (Hospitalization, Other)
  Sender: FDA-Public Use
  Company Number: US-TORRENT-00011344

PATIENT
  Age: 52 Year
  Sex: Female

DRUGS (4)
  1. LEVETIRACETAM [Suspect]
     Active Substance: LEVETIRACETAM
     Indication: Muscle twitching
     Dosage: 1500 MG TWICE A DAY
     Route: 042
  2. LACOSAMIDE [Concomitant]
     Active Substance: LACOSAMIDE
     Indication: Product used for unknown indication
     Route: 065
  3. LORAZEPAM [Concomitant]
     Active Substance: LORAZEPAM
     Indication: Muscle twitching
     Route: 042
  4. PROPOFOL [Concomitant]
     Active Substance: PROPOFOL
     Indication: Sedation
     Dosage: UNKNOWN
     Route: 065

REACTIONS (3)
  - Myoclonus [Recovered/Resolved]
  - Toxicity to various agents [Recovered/Resolved]
  - Drug level increased [Recovered/Resolved]
